FAERS Safety Report 20988710 (Version 2)
Quarter: 2022Q3

REPORT INFORMATION
  Report Type: Spontaneous
  Country: US (occurrence: US)
  Receive Date: 20220621
  Receipt Date: 20220719
  Transmission Date: 20221027
  Serious: Yes (Hospitalization)
  Sender: FDA-Public Use
  Company Number: US-PFIZER INC-202200843106

PATIENT
  Age: 13 Year
  Sex: Male
  Weight: 48.698 kg

DRUGS (3)
  1. BESPONSA [Suspect]
     Active Substance: INOTUZUMAB OZOGAMICIN
     Indication: Philadelphia chromosome positive
     Dosage: 0.9 MG (0.9MG ADMINISTERED INTRAVENOUSLY)
     Route: 042
     Dates: start: 20220607
  2. DEXAMETHASONE SODIUM PHOSPHATE [Concomitant]
     Active Substance: DEXAMETHASONE SODIUM PHOSPHATE
     Dosage: 9 MG, 2X/DAY (9MG TWICE PER DAY ORALLY)
     Route: 048
  3. CYCLOPHOSPHAMIDE [Concomitant]
     Active Substance: CYCLOPHOSPHAMIDE
     Indication: Chemotherapy
     Dosage: 230 MG, DAILY (230MG DAILY FOR 4 DAYS INTRAVENOUSLY)
     Route: 042
     Dates: start: 20220606, end: 20220609

REACTIONS (3)
  - Blood fibrinogen decreased [Recovered/Resolved]
  - Liver function test increased [Not Recovered/Not Resolved]
  - International normalised ratio abnormal [Unknown]

NARRATIVE: CASE EVENT DATE: 20220609
